FAERS Safety Report 18504922 (Version 2)
Quarter: 2025Q2

REPORT INFORMATION
  Report Type: Spontaneous
  Country: US (occurrence: US)
  Receive Date: 20201115
  Receipt Date: 20250628
  Transmission Date: 20250717
  Serious: Yes (Other)
  Sender: AUROBINDO
  Company Number: US-MLMSERVICE-20201029-2557966-1

PATIENT
  Age: 54 Year
  Sex: Male

DRUGS (2)
  1. LISINOPRIL [Suspect]
     Active Substance: LISINOPRIL
     Indication: Glomerulonephritis membranous
     Route: 065
     Dates: start: 2011, end: 2011
  2. SIMVASTATIN [Concomitant]
     Active Substance: SIMVASTATIN
     Indication: Glomerulonephritis membranous
     Route: 065
     Dates: start: 2011

REACTIONS (2)
  - Hyperkalaemia [Unknown]
  - Drug intolerance [Unknown]

NARRATIVE: CASE EVENT DATE: 20110101
